FAERS Safety Report 7178360-0 (Version None)
Quarter: 2010Q4

REPORT INFORMATION
  Report Type: 
  Country: None (occurrence: None)
  Receive Date: 20101220
  Receipt Date: 20101215
  Transmission Date: 20110411
  Serious: Yes (Death)
  Sender: FDA-Public Use
  Company Number: US-AMGEN-USASP2010000206

PATIENT

DRUGS (16)
  1. NPLATE [Suspect]
     Indication: IDIOPATHIC THROMBOCYTOPENIC PURPURA
     Dosage: 170 A?G, UNK
     Dates: start: 20100419, end: 20100602
  2. ALLOPURINOL [Concomitant]
     Dosage: 150 MG, QD
  3. FUROSEMIDE [Concomitant]
     Dosage: 40 MG, UNK
  4. GLYBURIDE [Concomitant]
     Dosage: 2.5 MG, QD
  5. ISOSORBIDE MONONITRATE [Concomitant]
     Dosage: 60 MG, UNK
  6. VALSARTAN [Concomitant]
     Dosage: 80 MG, QD
  7. METOPROLOL TARTRATE [Concomitant]
     Dosage: 25 MG, UNK
  8. SLOW-MAG                           /00438001/ [Concomitant]
     Dosage: 64 MG, QD
  9. VITAMIN C                          /00008001/ [Concomitant]
     Dosage: 1000 MG, QD
  10. PREDNISONE [Concomitant]
     Dosage: 30 MG, QD
  11. CIPRO                              /00042702/ [Concomitant]
     Dosage: 500 MG, UNK
  12. VESICARE [Concomitant]
     Dosage: 5 MG, QD
  13. POTASSIUM [Concomitant]
     Dosage: 10 MEQ, QD
  14. TAMSULIN [Concomitant]
     Dosage: 0.4 UNK, QD
  15. SIMVASTATIN [Concomitant]
     Dosage: 40 UNK, QD
  16. CALCIUM WITH VITAMIN D             /00944201/ [Concomitant]
     Dosage: UNK UNK, QD

REACTIONS (1)
  - DEATH [None]
